FAERS Safety Report 23705176 (Version 1)
Quarter: 2024Q2

REPORT INFORMATION
  Report Type: Spontaneous
  Country: RO (occurrence: RO)
  Receive Date: 20240404
  Receipt Date: 20240404
  Transmission Date: 20240716
  Serious: Yes (Other)
  Sender: FDA-Public Use
  Company Number: RO-SUN PHARMACEUTICAL INDUSTRIES LTD-2024R1-439619

PATIENT
  Age: 55 Year
  Sex: Male

DRUGS (24)
  1. ASPIRIN [Suspect]
     Active Substance: ASPIRIN
     Indication: Retinal vein thrombosis
     Dosage: UNK  (1 PC PER DAY)
     Route: 065
  2. ASPIRIN [Suspect]
     Active Substance: ASPIRIN
     Indication: COVID-19
  3. ASPIRIN [Suspect]
     Active Substance: ASPIRIN
     Indication: Hypercoagulation
  4. ASPIRIN [Suspect]
     Active Substance: ASPIRIN
     Indication: Hyperhomocysteinaemia
  5. PENTOXIFYLLINE [Suspect]
     Active Substance: PENTOXIFYLLINE
     Indication: Retinal vein thrombosis
     Dosage: UNK
     Route: 065
  6. PENTOXIFYLLINE [Suspect]
     Active Substance: PENTOXIFYLLINE
     Indication: COVID-19
  7. PENTOXIFYLLINE [Suspect]
     Active Substance: PENTOXIFYLLINE
     Indication: Hypercoagulation
  8. PENTOXIFYLLINE [Suspect]
     Active Substance: PENTOXIFYLLINE
     Indication: Hyperhomocysteinaemia
  9. CEFTRIAXONE [Suspect]
     Active Substance: CEFTRIAXONE\CEFTRIAXONE SODIUM
     Indication: Retinal vein thrombosis
     Dosage: UNK
     Route: 065
  10. CEFTRIAXONE [Suspect]
     Active Substance: CEFTRIAXONE\CEFTRIAXONE SODIUM
     Indication: COVID-19
  11. CEFTRIAXONE [Suspect]
     Active Substance: CEFTRIAXONE\CEFTRIAXONE SODIUM
     Indication: Hypercoagulation
  12. CEFTRIAXONE [Suspect]
     Active Substance: CEFTRIAXONE\CEFTRIAXONE SODIUM
     Indication: Hyperhomocysteinaemia
  13. ENOXAPARIN SODIUM [Suspect]
     Active Substance: ENOXAPARIN SODIUM
     Indication: Retinal vein thrombosis
     Dosage: UNK (0.4 X 2)
     Route: 065
  14. ENOXAPARIN SODIUM [Suspect]
     Active Substance: ENOXAPARIN SODIUM
     Indication: COVID-19
  15. ENOXAPARIN SODIUM [Suspect]
     Active Substance: ENOXAPARIN SODIUM
     Indication: Hypercoagulation
  16. ENOXAPARIN SODIUM [Suspect]
     Active Substance: ENOXAPARIN SODIUM
     Indication: Hyperhomocysteinaemia
  17. METHYLPREDNISOLONE [Suspect]
     Active Substance: METHYLPREDNISOLONE
     Indication: Retinal vein thrombosis
     Dosage: UNK
     Route: 065
  18. METHYLPREDNISOLONE [Suspect]
     Active Substance: METHYLPREDNISOLONE
     Indication: COVID-19
  19. METHYLPREDNISOLONE [Suspect]
     Active Substance: METHYLPREDNISOLONE
     Indication: Hypercoagulation
  20. METHYLPREDNISOLONE [Suspect]
     Active Substance: METHYLPREDNISOLONE
     Indication: Hyperhomocysteinaemia
  21. VITAMINS [Suspect]
     Active Substance: VITAMINS
     Indication: Retinal vein thrombosis
     Dosage: UNK
     Route: 065
  22. VITAMINS [Suspect]
     Active Substance: VITAMINS
     Indication: COVID-19
  23. VITAMINS [Suspect]
     Active Substance: VITAMINS
     Indication: Hypercoagulation
  24. VITAMINS [Suspect]
     Active Substance: VITAMINS
     Indication: Hyperhomocysteinaemia

REACTIONS (2)
  - Drug ineffective [Unknown]
  - Disease progression [Unknown]
